FAERS Safety Report 22142474 (Version 1)
Quarter: 2023Q1

REPORT INFORMATION
  Report Type: Spontaneous
  Country: US (occurrence: US)
  Receive Date: 20230327
  Receipt Date: 20230327
  Transmission Date: 20230418
  Serious: No
  Sender: FDA-Public Use
  Company Number: US-TEVA-2023-US-2865546

PATIENT
  Age: 29 Year
  Sex: Female

DRUGS (2)
  1. MEFLOQUINE HYDROCHLORIDE [Suspect]
     Active Substance: MEFLOQUINE HYDROCHLORIDE
     Indication: Malaria prophylaxis
     Route: 065
     Dates: start: 20230306
  2. VALACYCLOVIR [Concomitant]
     Active Substance: VALACYCLOVIR HYDROCHLORIDE
     Indication: Product used for unknown indication
     Route: 065

REACTIONS (1)
  - Insomnia [Unknown]

NARRATIVE: CASE EVENT DATE: 20230301
